FAERS Safety Report 17694565 (Version 2)
Quarter: 2020Q2

REPORT INFORMATION
  Report Type: Report from Study
  Country: IL (occurrence: IL)
  Receive Date: 20200422
  Receipt Date: 20200622
  Transmission Date: 20200714
  Serious: Yes (Other)
  Sender: FDA-Public Use
  Company Number: IL-JNJFOC-20191206777

PATIENT
  Age: 43 Year
  Sex: Female

DRUGS (3)
  1. ZINAT [Concomitant]
     Active Substance: CEFUROXIME AXETIL
  2. STELARA [Suspect]
     Active Substance: USTEKINUMAB
     Indication: CROHN^S DISEASE
     Route: 058
     Dates: start: 20190815
  3. IRON [Concomitant]
     Active Substance: IRON
     Indication: ANAEMIA

REACTIONS (2)
  - Menstruation delayed [Unknown]
  - Pneumonia [Unknown]

NARRATIVE: CASE EVENT DATE: 201912
